FAERS Safety Report 6220561-X (Version None)
Quarter: 2009Q2

REPORT INFORMATION
  Report Type: 
  Country: None (occurrence: None)
  Receive Date: 20090610
  Receipt Date: 20090603
  Transmission Date: 20091009
  Serious: Yes (Other)
  Sender: FDA-Public Use
  Company Number: US-ASTRAZENECA-2009UW14263

PATIENT
  Age: 68 Year
  Sex: Female
  Weight: 99.8 kg

DRUGS (9)
  1. ARIMIDEX [Suspect]
     Route: 048
  2. ALDACTONE [Concomitant]
     Route: 065
  3. MICRO-K [Concomitant]
     Route: 065
  4. TOPROL-XL [Concomitant]
     Route: 065
  5. CITRACAL [Concomitant]
     Route: 065
  6. CENTRUM SILVER [Concomitant]
     Route: 065
  7. BIOTIN [Concomitant]
     Route: 065
  8. OMEGA [Concomitant]
     Route: 065
  9. TRICOR [Concomitant]
     Route: 065

REACTIONS (5)
  - ABDOMINAL PAIN [None]
  - AMNESIA [None]
  - CARDIAC DISORDER [None]
  - HEADACHE [None]
  - VISION BLURRED [None]
